FAERS Safety Report 7041747-0 (Version None)
Quarter: 2010Q4

REPORT INFORMATION
  Report Type: 
  Country: None (occurrence: None)
  Receive Date: 20101013
  Receipt Date: 20091104
  Transmission Date: 20110411
  Serious: No
  Sender: FDA-Public Use
  Company Number: US-ASTRAZENECA-2009SE24714

PATIENT
  Age: 93 Year
  Sex: Female

DRUGS (1)
  1. SYMBICORT [Suspect]
     Dosage: 320 UG BID
     Route: 055
     Dates: start: 20091028

REACTIONS (1)
  - LOCALISED OEDEMA [None]
